FAERS Safety Report 8543718-1 (Version None)
Quarter: 2012Q3

REPORT INFORMATION
  Report Type: 
  Country: None (occurrence: None)
  Receive Date: 20120717
  Receipt Date: 20120717
  Transmission Date: 20120928
  Serious: Yes (Hospitalization, Other)
  Sender: FDA-Public Use
  Company Number: JPI-P-009386

PATIENT
  Age: 81 Year
  Sex: Male
  Weight: 92.9874 kg

DRUGS (3)
  1. 8-9 MEDICATIONS [Concomitant]
  2. DEXTROAMPHETAMINE [Concomitant]
  3. XYREM [Suspect]
     Indication: CATAPLEXY
     Dosage: 4.5 GM (2.25 GM, 2 IN 1 D), ORAL
     Route: 048
     Dates: start: 20071204

REACTIONS (8)
  - REFUSAL OF TREATMENT BY PATIENT [None]
  - SKIN CANCER [None]
  - FALL [None]
  - CONVULSION [None]
  - CONDITION AGGRAVATED [None]
  - DRUG INEFFECTIVE [None]
  - LUNG NEOPLASM [None]
  - MEMORY IMPAIRMENT [None]
